FAERS Safety Report 14061012 (Version 2)
Quarter: 2018Q4

REPORT INFORMATION
  Report Type: Spontaneous
  Country: US (occurrence: US)
  Receive Date: 20171007
  Receipt Date: 20181001
  Transmission Date: 20190204
  Serious: Yes (Other)
  Sender: FDA-Public Use
  Company Number: PHEH2017US031689

PATIENT
  Age: 45 Year
  Sex: Female

DRUGS (1)
  1. COSENTYX [Suspect]
     Active Substance: SECUKINUMAB
     Indication: PRODUCT USED FOR UNKNOWN INDICATION
     Dosage: 300 MG, QMO
     Route: 065

REACTIONS (6)
  - Psoriasis [Unknown]
  - Erythema [Unknown]
  - Psoriatic arthropathy [Unknown]
  - Swelling [Unknown]
  - Musculoskeletal stiffness [Unknown]
  - Product storage error [Unknown]
